FAERS Safety Report 24049391 (Version 1)
Quarter: 2024Q3

REPORT INFORMATION
  Report Type: Spontaneous
  Country: GB (occurrence: GB)
  Receive Date: 20240704
  Receipt Date: 20240704
  Transmission Date: 20241017
  Serious: No
  Sender: ALKEM
  Company Number: None

PATIENT
  Age: 80 Year
  Sex: Female
  Weight: 55 kg

DRUGS (6)
  1. IBUPROFEN [Suspect]
     Active Substance: IBUPROFEN
     Indication: Product used for unknown indication
     Dosage: 400 MILLIGRAM (TABLET)
     Route: 065
     Dates: start: 20240301
  2. ASPIRIN [Concomitant]
     Active Substance: ASPIRIN
     Indication: Product used for unknown indication
     Dosage: UNK, QD (TAKE ONE DAILY)
     Route: 065
     Dates: start: 20230811
  3. CODEINE PHOSPHATE [Concomitant]
     Active Substance: CODEINE PHOSPHATE
     Indication: Product used for unknown indication
     Dosage: UNK (ONE OR TWO TABLETS TO BE TAKEN UP TO FOUR TIME)
     Route: 065
     Dates: start: 20230520
  4. DIETARY SUPPLEMENT [Concomitant]
     Active Substance: DIETARY SUPPLEMENT
     Indication: Product used for unknown indication
     Dosage: UNK, BID (1 BOTTLE TO BE TAKEN TWICE DAILY)
     Route: 065
     Dates: start: 20240201
  5. FUROSEMIDE [Concomitant]
     Active Substance: FUROSEMIDE
     Indication: Oedema
     Dosage: UNK, QD (TAKE ONE OR TWO EACH MORNING )
     Route: 065
     Dates: start: 20240322
  6. LANSOPRAZOLE [Concomitant]
     Active Substance: LANSOPRAZOLE
     Indication: Product used for unknown indication
     Dosage: 1 DOSAGE FORM, OD (ONE CAPSULE TO BE TAKEN ONCE A DAY TO PROTECT S)
     Route: 065
     Dates: start: 20230118

REACTIONS (1)
  - Hypersensitivity [Unknown]
